FAERS Safety Report 9314358 (Version 3)
Quarter: 2013Q4

REPORT INFORMATION
  Report Type: Spontaneous
  Country: US (occurrence: US)
  Receive Date: 20130529
  Receipt Date: 20131001
  Transmission Date: 20140711
  Serious: Yes (Death, Other)
  Sender: FDA-Public Use
  Company Number: US-ROCHE-1229559

PATIENT
  Age: 46 Year
  Sex: Male
  Weight: 68.1 kg

DRUGS (1)
  1. FUZEON [Suspect]
     Indication: HIV INFECTION
     Route: 058

REACTIONS (3)
  - Metastatic squamous cell carcinoma [Fatal]
  - Rectal cancer [Not Recovered/Not Resolved]
  - Metastasis [Unknown]
